FAERS Safety Report 10290076 (Version 1)
Quarter: 2014Q3

REPORT INFORMATION
  Report Type: Spontaneous
  Country: US (occurrence: US)
  Receive Date: 20140710
  Receipt Date: 20140710
  Transmission Date: 20150326
  Serious: No
  Sender: FDA-Public Use
  Company Number: US-PFIZER INC-2014189009

PATIENT
  Sex: Female
  Weight: 45.35 kg

DRUGS (4)
  1. PREMARIN [Suspect]
     Active Substance: ESTROGENS, CONJUGATED
     Dosage: 1.5 G, (THREE TIMES A WEEK)
     Route: 067
     Dates: start: 2014
  2. PREMARIN [Suspect]
     Active Substance: ESTROGENS, CONJUGATED
     Dosage: 2 G, (THREE TIMES A WEEK)
     Route: 067
  3. PREMARIN [Suspect]
     Active Substance: ESTROGENS, CONJUGATED
     Indication: VULVOVAGINAL DRYNESS
     Dosage: 1 G, (THREE TIMES A WEEK)
     Route: 067
     Dates: start: 201405, end: 2014
  4. PREMARIN [Suspect]
     Active Substance: ESTROGENS, CONJUGATED
     Indication: HORMONE LEVEL ABNORMAL
     Dosage: 0.5 G, 2X/WEEK
     Route: 067
     Dates: start: 201311, end: 201405

REACTIONS (9)
  - Wrong technique in drug usage process [Unknown]
  - Vulvovaginal discomfort [Unknown]
  - Drug ineffective [Unknown]
  - Feeling jittery [Not Recovered/Not Resolved]
  - Feeling abnormal [Not Recovered/Not Resolved]
  - Restlessness [Not Recovered/Not Resolved]
  - Vulvovaginal burning sensation [Unknown]
  - Anxiety [Not Recovered/Not Resolved]
  - Drug intolerance [Unknown]

NARRATIVE: CASE EVENT DATE: 201405
